FAERS Safety Report 21677236 (Version 1)
Quarter: 2022Q4

REPORT INFORMATION
  Report Type: Spontaneous
  Country: US (occurrence: US)
  Receive Date: 20221203
  Receipt Date: 20221203
  Transmission Date: 20230112
  Serious: No
  Sender: FDA-Public Use
  Company Number: US-drreddys-SPO/USA/22/0157234

PATIENT
  Age: 47 Year
  Sex: Male

DRUGS (2)
  1. ZENATANE [Suspect]
     Active Substance: ISOTRETINOIN
     Indication: Acne
     Dates: start: 20220803
  2. ZENATANE [Suspect]
     Active Substance: ISOTRETINOIN

REACTIONS (2)
  - Lip haemorrhage [Unknown]
  - Lip dry [Unknown]

NARRATIVE: CASE EVENT DATE: 20220805
